FAERS Safety Report 14319494 (Version 1)
Quarter: 2017Q4

REPORT INFORMATION
  Report Type: Spontaneous
  Country: IT (occurrence: IT)
  Receive Date: 20171222
  Receipt Date: 20171222
  Transmission Date: 20180321
  Serious: Yes (Hospitalization)
  Sender: FDA-Public Use
  Company Number: IT-TEVA-2017-IT-839506

PATIENT
  Age: 43 Year
  Sex: Female

DRUGS (5)
  1. CARBOLITHIUM [Suspect]
     Active Substance: LITHIUM CARBONATE
     Indication: BIPOLAR DISORDER
     Route: 048
     Dates: start: 20170217, end: 20170314
  2. NEO NEVRAL COMPRESSE [Concomitant]
  3. EUTIROX 25 MICROGRAMMI COMPRESSE [Concomitant]
  4. RIVOTRIL [Concomitant]
     Active Substance: CLONAZEPAM
  5. AKINETON [Concomitant]
     Active Substance: BIPERIDEN HYDROCHLORIDE

REACTIONS (7)
  - Toxicity to various agents [Unknown]
  - Tremor [Unknown]
  - Anxiety [Unknown]
  - Antipsychotic drug level increased [Unknown]
  - Sopor [Unknown]
  - Hypertonia [Unknown]
  - Bradyphrenia [Unknown]

NARRATIVE: CASE EVENT DATE: 20170314
